FAERS Safety Report 6382805-3 (Version None)
Quarter: 2009Q3

REPORT INFORMATION
  Report Type: 
  Country: None (occurrence: None)
  Receive Date: 20090930
  Receipt Date: 20090921
  Transmission Date: 20100115
  Serious: No
  Sender: FDA-Public Use
  Company Number: US-B.I. PHARMACEUTICALS,INC./RIDGEFIELD-2009-BP-11129BP

PATIENT
  Sex: Female

DRUGS (3)
  1. SPIRIVA [Suspect]
     Indication: CHRONIC OBSTRUCTIVE PULMONARY DISEASE
     Dosage: 18 MCG
     Route: 055
     Dates: start: 20040101
  2. TARKA [Concomitant]
     Indication: HYPERTENSION
  3. CALCIUM [Concomitant]
     Indication: OSTEOPENIA

REACTIONS (3)
  - DEPRESSION [None]
  - SINUSITIS [None]
  - STAPHYLOCOCCAL INFECTION [None]
